FAERS Safety Report 8824109 (Version 4)
Quarter: 2012Q4

REPORT INFORMATION
  Report Type: 
  Country: US (occurrence: US)
  Receive Date: 20121004
  Receipt Date: 20121022
  Transmission Date: 20130627
  Serious: Yes (Other)
  Sender: FDA-Public Use
  Company Number: US-009507513-1210USA000421

PATIENT
  Sex: Female
  Weight: 126.53 kg

DRUGS (1)
  1. IMPLANON [Suspect]
     Indication: CONTRACEPTION
     Dosage: 68 mg, UNK
     Route: 059
     Dates: start: 200911

REACTIONS (6)
  - Abortion spontaneous [Unknown]
  - Mood altered [Unknown]
  - Weight increased [Unknown]
  - Pregnancy [Recovered/Resolved]
  - Device deployment issue [Unknown]
  - Depression [Unknown]
